FAERS Safety Report 8453187-8 (Version None)
Quarter: 2012Q2

REPORT INFORMATION
  Report Type: 
  Country: None (occurrence: None)
  Receive Date: 20120620
  Receipt Date: 20120510
  Transmission Date: 20120825
  Serious: No
  Sender: FDA-Public Use
  Company Number: US-VERTEX PHARMACEUTICALS INC.-AE-2012-006872

PATIENT
  Sex: Male
  Weight: 104.87 kg

DRUGS (6)
  1. RIBAVIRIN [Concomitant]
     Indication: HEPATITIS C
     Route: 048
     Dates: start: 20120330
  2. CITALOPRAM [Concomitant]
     Route: 048
  3. TEMAZEPAM [Concomitant]
     Route: 048
  4. PEGASYS [Concomitant]
     Indication: HEPATITIS C
     Route: 058
     Dates: start: 20120330
  5. LEVOTHYROXINE SODIUM [Concomitant]
     Indication: THYROID HORMONE REPLACEMENT THERAPY
     Route: 048
  6. INCIVEK [Suspect]
     Indication: HEPATITIS C
     Route: 048
     Dates: start: 20120330

REACTIONS (9)
  - HAEMORRHOIDS [None]
  - GLOSSODYNIA [None]
  - ANORECTAL DISCOMFORT [None]
  - PRURITUS [None]
  - INSOMNIA [None]
  - TONGUE DISORDER [None]
  - RASH PAPULAR [None]
  - WEIGHT INCREASED [None]
  - DIARRHOEA [None]
